FAERS Safety Report 9925356 (Version 1)
Quarter: 2014Q1

REPORT INFORMATION
  Report Type: Spontaneous
  Country: US (occurrence: US)
  Receive Date: 20140226
  Receipt Date: 20140226
  Transmission Date: 20141002
  Serious: Yes (Other)
  Sender: FDA-Public Use
  Company Number: US-PFIZER INC-2014052766

PATIENT
  Age: 24 Year
  Sex: Male
  Weight: 68.03 kg

DRUGS (1)
  1. VIAGRA [Suspect]
     Indication: ERECTILE DYSFUNCTION
     Dosage: 2 DF, AS NEEDED
     Dates: start: 201402

REACTIONS (2)
  - Erection increased [Not Recovered/Not Resolved]
  - Penile haemorrhage [Not Recovered/Not Resolved]
